FAERS Safety Report 14626086 (Version 6)
Quarter: 2018Q2

REPORT INFORMATION
  Report Type: Spontaneous
  Country: US (occurrence: US)
  Receive Date: 20180312
  Receipt Date: 20180518
  Transmission Date: 20180711
  Serious: Yes (Death, Hospitalization, Other)
  Sender: FDA-Public Use
  Company Number: US-UNITED THERAPEUTICS-UNT-2018-003122

PATIENT
  Age: 42 Year
  Sex: Female
  Weight: 84.81 kg

DRUGS (6)
  1. REMODULIN [Suspect]
     Active Substance: TREPROSTINIL
     Dosage: UNK
     Route: 058
  2. REMODULIN [Suspect]
     Active Substance: TREPROSTINIL
     Indication: PULMONARY ARTERIAL HYPERTENSION
     Dosage: 0.199 ?G/KG, CONTINUING
     Route: 058
     Dates: start: 20140226
  3. REMODULIN [Suspect]
     Active Substance: TREPROSTINIL
     Dosage: 0.227 ?G/KG, CONTINUING
     Route: 058
  4. LETAIRIS [Concomitant]
     Active Substance: AMBRISENTAN
     Indication: PRODUCT USED FOR UNKNOWN INDICATION
     Route: 065
  5. REMODULIN [Suspect]
     Active Substance: TREPROSTINIL
     Dosage: 0.208 ?G/KG, CONTINUING
     Route: 058
     Dates: start: 20140726
  6. ADCIRCA [Concomitant]
     Active Substance: TADALAFIL
     Indication: PRODUCT USED FOR UNKNOWN INDICATION
     Route: 065

REACTIONS (6)
  - Oedema peripheral [Recovering/Resolving]
  - Fluid overload [Unknown]
  - Dyspnoea [Unknown]
  - Pulmonary embolism [Unknown]
  - General physical health deterioration [Fatal]
  - Oxygen saturation decreased [Unknown]

NARRATIVE: CASE EVENT DATE: 20180305
